FAERS Safety Report 6361481-X (Version None)
Quarter: 2009Q3

REPORT INFORMATION
  Report Type: 
  Country: None (occurrence: None)
  Receive Date: 20090918
  Receipt Date: 20090907
  Transmission Date: 20100115
  Serious: Yes (Hospitalization)
  Sender: FDA-Public Use
  Company Number: FR-PFIZER INC-2009268191

PATIENT
  Age: 78 Year

DRUGS (8)
  1. ATARAX [Suspect]
     Dosage: 50 MG, DAILY
     Route: 048
     Dates: start: 20090201, end: 20090605
  2. QUITAXON [Suspect]
     Dosage: 100 MG, DAILY
     Route: 048
     Dates: start: 20090201, end: 20090601
  3. ALLOPURINOL [Suspect]
     Dosage: 100 MG, DAILY
     Route: 048
     Dates: start: 20090201, end: 20090601
  4. NICARDIPINE HCL [Concomitant]
     Dosage: 50 MG, DAILY
  5. MOPRAL [Concomitant]
     Dosage: 20 MG, DAILY
  6. SERESTA [Concomitant]
     Dosage: 70 MG, DAILY
  7. DELURSAN [Concomitant]
     Dosage: 250 MG, 2X/DAY
  8. TOPALGIC [Concomitant]
     Dosage: 100 MG, 2X/DAY

REACTIONS (1)
  - PHOTOSENSITIVITY REACTION [None]
